FAERS Safety Report 6549792-6 (Version None)
Quarter: 2010Q1

REPORT INFORMATION
  Report Type: 
  Country: None (occurrence: None)
  Receive Date: 20100125
  Receipt Date: 20100114
  Transmission Date: 20100710
  Serious: Yes (Death, Hospitalization)
  Sender: FDA-Public Use
  Company Number: US-AMGEN-US385850

PATIENT
  Sex: Male

DRUGS (6)
  1. NPLATE [Suspect]
     Indication: IDIOPATHIC THROMBOCYTOPENIC PURPURA
     Dates: start: 20100106, end: 20100113
  2. CORTICOSTEROIDS [Concomitant]
     Dates: start: 20091218
  3. IMMUNE GLOBULIN (HUMAN) [Concomitant]
     Dates: start: 20091219, end: 20091219
  4. RITUXIMAB [Concomitant]
     Dates: start: 20091222, end: 20091229
  5. CYCLOPHOSPHAMIDE [Concomitant]
     Dates: start: 20100102, end: 20100102
  6. VINCRISTINE [Concomitant]
     Dates: start: 20100102, end: 20100102

REACTIONS (2)
  - DEATH [None]
  - PLATELET COUNT DECREASED [None]
